FAERS Safety Report 12082338 (Version 2)
Quarter: 2016Q2

REPORT INFORMATION
  Report Type: Spontaneous
  Country: US (occurrence: US)
  Receive Date: 20160217
  Receipt Date: 20160414
  Transmission Date: 20160815
  Serious: Yes (Death, Other)
  Sender: FDA-Public Use
  Company Number: US-BEH-2016058622

PATIENT
  Age: 6 Year
  Sex: Male
  Weight: 19.6 kg

DRUGS (9)
  1. HIZENTRA [Suspect]
     Active Substance: HUMAN IMMUNOGLOBULIN G
     Indication: BLOOD IMMUNOGLOBULIN G DECREASED
     Route: 058
  2. CHILDREN^S MULTIVITAMIN [Concomitant]
  3. EPIPEN [Concomitant]
     Active Substance: EPINEPHRINE
  4. OMEPRAZOLE. [Concomitant]
     Active Substance: OMEPRAZOLE
  5. PROBIOTIC [Concomitant]
     Active Substance: PROBIOTICS NOS
  6. LASIX [Concomitant]
     Active Substance: FUROSEMIDE
  7. HIZENTRA [Suspect]
     Active Substance: HUMAN IMMUNOGLOBULIN G
     Indication: BLOOD IMMUNOGLOBULIN G DECREASED
     Route: 058
  8. CEFDINIR. [Concomitant]
     Active Substance: CEFDINIR
  9. REVATIO [Concomitant]
     Active Substance: SILDENAFIL CITRATE

REACTIONS (3)
  - Gastric infection [Unknown]
  - Sudden death [Fatal]
  - Ear infection [Unknown]

NARRATIVE: CASE EVENT DATE: 20160120
